FAERS Safety Report 5977434-7 (Version None)
Quarter: 2008Q4

REPORT INFORMATION
  Report Type: 
  Country: None (occurrence: None)
  Receive Date: 20081203
  Receipt Date: 20081126
  Transmission Date: 20090506
  Serious: Yes (Congenital Anomaly)
  Sender: FDA-Public Use
  Company Number: A0727046A

PATIENT
  Sex: Male

DRUGS (5)
  1. PAXIL [Suspect]
     Indication: DEPRESSION
     Dosage: 30MG PER DAY
     Dates: start: 19951215, end: 19970312
  2. ZITHROMAX [Concomitant]
     Dates: start: 19960207
  3. ACETAMINOPHEN AND CODEINE PHOSPHATE #3 [Concomitant]
     Indication: HEADACHE
     Dates: start: 19960930, end: 19961001
  4. CEPHALEXIN [Concomitant]
     Dates: start: 19960930, end: 19961001
  5. VITAMIN TAB [Concomitant]

REACTIONS (4)
  - ATRIAL SEPTAL DEFECT [None]
  - CARDIAC MURMUR [None]
  - DRUG EXPOSURE DURING PREGNANCY [None]
  - PATENT DUCTUS ARTERIOSUS [None]
